FAERS Safety Report 11223148 (Version 2)
Quarter: 2015Q3

REPORT INFORMATION
  Report Type: Report from Study
  Country: US (occurrence: US)
  Receive Date: 20150626
  Receipt Date: 20150702
  Transmission Date: 20151125
  Serious: Yes (Hospitalization)
  Sender: FDA-Public Use
  Company Number: US-ACTELION-A-US2014-109705

PATIENT
  Age: 36 Year
  Sex: Female

DRUGS (4)
  1. TRACLEER [Suspect]
     Active Substance: BOSENTAN
     Indication: PULMONARY ARTERIAL HYPERTENSION
     Dosage: 125 MG, BID
     Route: 048
     Dates: start: 2011
  2. ADCIRCA [Concomitant]
     Active Substance: TADALAFIL
  3. VELETRI [Suspect]
     Active Substance: EPOPROSTENOL
     Indication: PULMONARY ARTERIAL HYPERTENSION
     Dosage: 25 NG/KG, PER MIN
     Route: 041
     Dates: start: 20130314
  4. COUMADIN [Concomitant]
     Active Substance: WARFARIN SODIUM

REACTIONS (7)
  - Chills [Recovered/Resolved]
  - Infection [Unknown]
  - Sepsis [Unknown]
  - Staphylococcus test positive [Recovered/Resolved]
  - Pyrexia [Recovered/Resolved]
  - Blood culture positive [Recovered/Resolved]
  - Bacteraemia [Recovered/Resolved]

NARRATIVE: CASE EVENT DATE: 20141109
